FAERS Safety Report 25152684 (Version 1)
Quarter: 2025Q2

REPORT INFORMATION
  Report Type: Spontaneous
  Country: CH (occurrence: CH)
  Receive Date: 20250402
  Receipt Date: 20250402
  Transmission Date: 20250716
  Serious: Yes (Other)
  Sender: GLAXOSMITHKLINE
  Company Number: None

PATIENT

DRUGS (7)
  1. WELLBUTRIN XL [Interacting]
     Active Substance: BUPROPION HYDROCHLORIDE
     Indication: Depression
     Dosage: 150 MG, QD
     Route: 048
     Dates: start: 20250101, end: 20250112
  2. WELLBUTRIN XL [Interacting]
     Active Substance: BUPROPION HYDROCHLORIDE
     Dosage: 300 MG, QD
     Route: 048
     Dates: start: 20250113, end: 20250205
  3. WELLBUTRIN XL [Interacting]
     Active Substance: BUPROPION HYDROCHLORIDE
     Dosage: 150 MG, QD
     Route: 048
     Dates: start: 20250206
  4. TRIMIPRAMINE [Interacting]
     Active Substance: TRIMIPRAMINE
     Indication: Depression
     Dosage: 25 MG, QD
     Route: 048
     Dates: end: 20250202
  5. TRIMIPRAMINE [Interacting]
     Active Substance: TRIMIPRAMINE
     Dosage: 12.5 MG, QD
     Route: 048
     Dates: start: 20250203
  6. MAGNESIUM ASPARTATE HYDROCHLORIDE [Concomitant]
     Active Substance: MAGNESIUM ASPARTATE HYDROCHLORIDE
     Indication: Depression
     Dosage: 10 MMOL, QD
     Route: 048
     Dates: start: 20250110, end: 20250126
  7. MAGNESIUM ASPARTATE HYDROCHLORIDE [Concomitant]
     Active Substance: MAGNESIUM ASPARTATE HYDROCHLORIDE
     Dosage: 20 MMOL, QD
     Route: 048
     Dates: start: 20250127

REACTIONS (3)
  - Electrocardiogram QT prolonged [Recovering/Resolving]
  - Hypertension [Not Recovered/Not Resolved]
  - Drug interaction [Unknown]

NARRATIVE: CASE EVENT DATE: 20250101
